FAERS Safety Report 12828484 (Version 12)
Quarter: 2019Q1

REPORT INFORMATION
  Report Type: Report from Study
  Country: None (occurrence: FR)
  Receive Date: 20161007
  Receipt Date: 20190130
  Transmission Date: 20190417
  Serious: Yes (Death, Hospitalization)
  Sender: FDA-Public Use
  Company Number: FR-ABBVIE-16P-056-1744210-00

PATIENT
  Age: 77 Year
  Sex: Male
  Weight: 56 kg

DRUGS (79)
  1. GA101 [Suspect]
     Active Substance: OBINUTUZUMAB
     Indication: CHRONIC LYMPHOCYTIC LEUKAEMIA
     Dosage: DATE OF MOST RECENT DOSE (1000 MG) PRIOR TO AE ONSET ON 28 JUN 2016 AT 14: 20
     Route: 042
     Dates: start: 20160316
  2. ESOMEPRAZOLE. [Concomitant]
     Active Substance: ESOMEPRAZOLE MAGNESIUM
     Indication: GASTROOESOPHAGEAL REFLUX DISEASE
     Route: 048
     Dates: start: 20160822, end: 20160922
  3. ESOMEPRAZOLE. [Concomitant]
     Active Substance: ESOMEPRAZOLE MAGNESIUM
     Route: 048
     Dates: start: 20161202, end: 20161209
  4. ZOPHREN [Concomitant]
     Active Substance: ONDANSETRON
     Indication: VOMITING
  5. OXYCODONE [Concomitant]
     Active Substance: OXYCODONE
     Indication: PAIN
     Dates: start: 20160913, end: 20160913
  6. ALPRAZOLAM. [Concomitant]
     Active Substance: ALPRAZOLAM
     Indication: ANXIETY
     Dates: start: 20160907, end: 20160907
  7. SUCRALFATE. [Concomitant]
     Active Substance: SUCRALFATE
     Indication: ULCER
     Route: 048
     Dates: start: 20160924, end: 20160930
  8. POTASSIUM CHLORIDE. [Concomitant]
     Active Substance: POTASSIUM CHLORIDE
     Indication: HYPOKALAEMIA
     Route: 048
     Dates: start: 20160927, end: 20160928
  9. PRIVIGEN [Concomitant]
     Active Substance: HUMAN IMMUNOGLOBULIN G
     Route: 042
     Dates: start: 20161028, end: 20161028
  10. PHENOXYMETHYLPENICILLIN [Concomitant]
     Active Substance: PENICILLIN V
     Route: 048
     Dates: start: 20160930, end: 20160930
  11. VALACICLOVIR [Concomitant]
     Active Substance: VALACYCLOVIR HYDROCHLORIDE
     Route: 048
     Dates: start: 20161203, end: 20161204
  12. FERROUS FUMARATE [Concomitant]
     Active Substance: FERROUS FUMARATE
     Indication: IRON DEFICIENCY
     Route: 048
     Dates: start: 20161205, end: 20161215
  13. PARACETAMOL [Concomitant]
     Active Substance: ACETAMINOPHEN
     Route: 048
     Dates: start: 20160916, end: 20160916
  14. HYDROXYDAUNORUBICIN [Concomitant]
     Active Substance: DOXORUBICIN
     Dosage: THIRD CURE
     Dates: start: 20161118
  15. GAVISCON [Concomitant]
     Active Substance: ALUMINUM HYDROXIDE\MAGNESIUM CARBONATE
     Indication: GASTROOESOPHAGEAL REFLUX DISEASE
     Route: 048
     Dates: start: 20160822, end: 20160826
  16. BISOPROLOL [Concomitant]
     Active Substance: BISOPROLOL
     Indication: HYPERTENSION
     Route: 048
     Dates: start: 20160915, end: 20160930
  17. PHENOXYMETHYLPENICILLIN [Concomitant]
     Active Substance: PENICILLIN V
     Route: 048
     Dates: start: 20160928, end: 20160928
  18. VINCRISTINE [Concomitant]
     Active Substance: VINCRISTINE
     Indication: CHEMOTHERAPY
     Dosage: FIRST CURE
     Dates: start: 20161007
  19. PREDNISONE. [Concomitant]
     Active Substance: PREDNISONE
     Dosage: SECOND CURE
     Dates: start: 20161028
  20. ISOPTINE [Concomitant]
     Active Substance: VERAPAMIL HYDROCHLORIDE
     Indication: HYPERTENSION
     Route: 048
     Dates: start: 20160909, end: 20160909
  21. CEFTRIAXONE. [Concomitant]
     Active Substance: CEFTRIAXONE
     Indication: INFECTION
     Route: 042
     Dates: start: 20160825, end: 20160830
  22. DROPERIDOL. [Concomitant]
     Active Substance: DROPERIDOL
     Indication: NAUSEA
     Route: 042
     Dates: start: 20160908, end: 20160912
  23. OXAZEPAM. [Concomitant]
     Active Substance: OXAZEPAM
     Route: 048
     Dates: start: 20160915, end: 20160915
  24. FUROSEMIDE. [Concomitant]
     Active Substance: FUROSEMIDE
     Indication: HYPERTENSION
     Route: 048
     Dates: start: 20160913, end: 20160917
  25. VANCOMYCINE [Concomitant]
     Active Substance: VANCOMYCIN
     Indication: INFECTION
     Route: 042
     Dates: start: 20160924, end: 20160927
  26. POTASSIUM CHLORIDE. [Concomitant]
     Active Substance: POTASSIUM CHLORIDE
     Route: 048
     Dates: start: 20161024, end: 20161104
  27. PHENOXYMETHYLPENICILLIN [Concomitant]
     Active Substance: PENICILLIN V
     Route: 048
     Dates: start: 20160917, end: 20160925
  28. SEDORRHOIDE [Concomitant]
     Indication: HAEMORRHOIDS
     Route: 054
     Dates: start: 20161029, end: 20161029
  29. PARACETAMOL [Concomitant]
     Active Substance: ACETAMINOPHEN
     Indication: PAIN
     Route: 048
     Dates: start: 20161202, end: 20161216
  30. PARACETAMOL [Concomitant]
     Active Substance: ACETAMINOPHEN
     Route: 048
     Dates: start: 20160909, end: 20160909
  31. VENETOCLAX. [Suspect]
     Active Substance: VENETOCLAX
     Indication: CHRONIC LYMPHOCYTIC LEUKAEMIA
     Dosage: DATE OF MOST RECENT DOSE (100 MG) PRIOR TO AE ONSET ON 29 JUN 2016
     Route: 048
     Dates: start: 20160411
  32. ISOPTINE [Concomitant]
     Active Substance: VERAPAMIL HYDROCHLORIDE
     Indication: OBSTRUCTION GASTRIC
     Route: 048
     Dates: start: 2000, end: 20160901
  33. ZYLORIC [Concomitant]
     Active Substance: ALLOPURINOL
     Indication: TUMOUR LYSIS SYNDROME
     Route: 048
     Dates: start: 20160310
  34. DROPERIDOL. [Concomitant]
     Active Substance: DROPERIDOL
     Indication: VOMITING
  35. ALPRAZOLAM. [Concomitant]
     Active Substance: ALPRAZOLAM
     Dates: start: 20160913, end: 20160913
  36. FUROSEMIDE. [Concomitant]
     Active Substance: FUROSEMIDE
     Route: 042
     Dates: start: 20161211, end: 20161211
  37. NORMACOL [Concomitant]
     Active Substance: HERBALS\KARAYA GUM
     Indication: CONSTIPATION
     Route: 054
     Dates: start: 20160927, end: 20160927
  38. PHENOXYMETHYLPENICILLIN [Concomitant]
     Active Substance: PENICILLIN V
     Route: 048
     Dates: start: 20160926, end: 20160926
  39. PHENOXYMETHYLPENICILLIN [Concomitant]
     Active Substance: PENICILLIN V
     Route: 048
     Dates: start: 20160929, end: 20160929
  40. HEPARINE CALCIQUE [Concomitant]
     Active Substance: HEPARIN CALCIUM
     Indication: PRODUCT USED FOR UNKNOWN INDICATION
     Route: 058
     Dates: start: 20161212, end: 20161212
  41. METHYLPREDNISOLONE. [Concomitant]
     Active Substance: METHYLPREDNISOLONE
     Route: 042
     Dates: start: 20160911, end: 20160913
  42. HYDROXYDAUNORUBICIN [Concomitant]
     Active Substance: DOXORUBICIN
     Indication: CHEMOTHERAPY
     Dosage: FIRST CURE
     Dates: start: 20161007
  43. PREGABALINE [Concomitant]
     Active Substance: PREGABALIN
     Indication: ANXIETY
     Route: 048
     Dates: start: 20160907, end: 20160907
  44. PREDNISONE. [Concomitant]
     Active Substance: PREDNISONE
     Route: 048
     Dates: start: 20160915, end: 20160916
  45. SUCRALFATE. [Concomitant]
     Active Substance: SUCRALFATE
     Route: 048
     Dates: start: 20161202, end: 20161215
  46. PRIVIGEN [Concomitant]
     Active Substance: HUMAN IMMUNOGLOBULIN G
     Route: 042
     Dates: start: 20160927, end: 20160927
  47. PHENOXYMETHYLPENICILLIN [Concomitant]
     Active Substance: PENICILLIN V
     Route: 048
     Dates: start: 20160917, end: 20160925
  48. PARACETAMOL [Concomitant]
     Active Substance: ACETAMINOPHEN
     Route: 048
     Dates: start: 20160911, end: 20160911
  49. PARACETAMOL [Concomitant]
     Active Substance: ACETAMINOPHEN
     Route: 048
     Dates: start: 20160913, end: 20160913
  50. METHYLPREDNISOLONE. [Concomitant]
     Active Substance: METHYLPREDNISOLONE
     Indication: PAIN
     Route: 042
     Dates: start: 20161215, end: 20161215
  51. CYCLOPHOSPHAMIDE. [Concomitant]
     Active Substance: CYCLOPHOSPHAMIDE
     Indication: CHEMOTHERAPY
     Dosage: FIRST CURE
     Dates: start: 20161007
  52. PREDNISONE. [Concomitant]
     Active Substance: PREDNISONE
     Dosage: THIRD CURE
     Dates: start: 20161118
  53. ZELITREX [Concomitant]
     Active Substance: VALACYCLOVIR HYDROCHLORIDE
     Indication: INFECTION
     Route: 048
     Dates: start: 20161018, end: 20161111
  54. ZELITREX [Concomitant]
     Active Substance: VALACYCLOVIR HYDROCHLORIDE
     Route: 048
     Dates: start: 20160318
  55. PHENOXYMETHYLPENICILLIN [Concomitant]
     Active Substance: PENICILLIN V
     Route: 048
     Dates: start: 20161202, end: 20161203
  56. PHENOXYMETHYLPENICILLIN [Concomitant]
     Active Substance: PENICILLIN V
     Route: 048
     Dates: start: 20160915, end: 20160915
  57. TINZAPARINE [Concomitant]
     Active Substance: TINZAPARIN
     Indication: THROMBOSIS
     Route: 058
     Dates: start: 20161025, end: 20161103
  58. CYCLOPHOSPHAMIDE. [Concomitant]
     Active Substance: CYCLOPHOSPHAMIDE
     Dosage: THIRD CURE
     Dates: start: 20161118
  59. VINCRISTINE [Concomitant]
     Active Substance: VINCRISTINE
     Dosage: THIRD CURE
     Dates: start: 20161118
  60. ESOMEPRAZOLE. [Concomitant]
     Active Substance: ESOMEPRAZOLE MAGNESIUM
     Route: 042
     Dates: start: 20161022, end: 20161103
  61. ESOMEPRAZOLE. [Concomitant]
     Active Substance: ESOMEPRAZOLE MAGNESIUM
     Route: 048
     Dates: start: 20161211, end: 20161214
  62. ZOPHREN [Concomitant]
     Active Substance: ONDANSETRON
     Indication: NAUSEA
     Route: 048
     Dates: start: 20160913, end: 20160913
  63. ORACILLINE [Concomitant]
     Active Substance: PENICILLIN V
     Indication: INFECTION
     Route: 048
     Dates: start: 20160913, end: 20160930
  64. OXAZEPAM. [Concomitant]
     Active Substance: OXAZEPAM
     Indication: ANXIETY
     Route: 048
     Dates: start: 20160913, end: 20160913
  65. PRIVIGEN [Concomitant]
     Active Substance: HUMAN IMMUNOGLOBULIN G
     Indication: INFECTION
     Route: 042
     Dates: start: 20161007, end: 20161007
  66. PRIVIGEN [Concomitant]
     Active Substance: HUMAN IMMUNOGLOBULIN G
     Route: 042
     Dates: start: 20160929, end: 20160929
  67. PHENOXYMETHYLPENICILLIN [Concomitant]
     Active Substance: PENICILLIN V
     Route: 048
     Dates: start: 20161022, end: 20161104
  68. VALACICLOVIR [Concomitant]
     Active Substance: VALACYCLOVIR HYDROCHLORIDE
     Indication: INFECTION
     Route: 048
     Dates: start: 20161018, end: 20161104
  69. VERAPAMIL [Concomitant]
     Active Substance: VERAPAMIL HYDROCHLORIDE
     Indication: HYPERTENSION
     Route: 048
     Dates: start: 20161203, end: 20161215
  70. HYDROXYDAUNORUBICIN [Concomitant]
     Active Substance: DOXORUBICIN
     Dosage: SECOND CURE
     Dates: start: 20161028
  71. VINCRISTINE [Concomitant]
     Active Substance: VINCRISTINE
     Dosage: SECOND CURE
     Dates: start: 20161028
  72. PREDNISONE. [Concomitant]
     Active Substance: PREDNISONE
     Indication: CHEMOTHERAPY
     Dosage: FIRST CURE
     Dates: start: 20161007
  73. SIMVASTATINE [Concomitant]
     Active Substance: SIMVASTATIN
     Indication: HYPERCHOLESTEROLAEMIA
     Route: 048
     Dates: start: 2015
  74. PREDNISONE. [Concomitant]
     Active Substance: PREDNISONE
     Indication: PRODUCT USED FOR UNKNOWN INDICATION
     Route: 048
     Dates: start: 20160914, end: 20160914
  75. SUCRALFATE. [Concomitant]
     Active Substance: SUCRALFATE
     Indication: GASTRODUODENAL ULCER
     Route: 048
     Dates: start: 20161018, end: 20161104
  76. PHENOXYMETHYLPENICILLIN [Concomitant]
     Active Substance: PENICILLIN V
     Indication: INFECTION
     Route: 048
     Dates: start: 20161018, end: 20161020
  77. PHENOXYMETHYLPENICILLIN [Concomitant]
     Active Substance: PENICILLIN V
     Route: 048
     Dates: start: 20161203, end: 20161211
  78. SULFATE DE GENTAMICINE [Concomitant]
     Indication: INFECTION
     Route: 042
     Dates: start: 20161211, end: 20161211
  79. CYCLOPHOSPHAMIDE. [Concomitant]
     Active Substance: CYCLOPHOSPHAMIDE
     Dosage: SECOND CURE
     Dates: start: 20161028

REACTIONS (6)
  - Pancytopenia [Not Recovered/Not Resolved]
  - Pyrexia [Recovered/Resolved]
  - Splenomegaly [Recovered/Resolved]
  - Sepsis [Fatal]
  - Wound evisceration [Recovered/Resolved]
  - T-cell lymphoma [Not Recovered/Not Resolved]

NARRATIVE: CASE EVENT DATE: 20160723
